FAERS Safety Report 6453225-8 (Version None)
Quarter: 2009Q4

REPORT INFORMATION
  Report Type: 
  Country: None (occurrence: None)
  Receive Date: 20091124
  Receipt Date: 20091113
  Transmission Date: 20100525
  Serious: Yes (Hospitalization)
  Sender: FDA-Public Use
  Company Number: JP-AMGEN-US375582

PATIENT
  Sex: Female

DRUGS (1)
  1. ENBREL [Suspect]
     Indication: RHEUMATOID ARTHRITIS
     Dosage: UNSPECIFIED DOSE FROM UNK DATE UNTIL UNK DATE IN 2008 -RESTARTED UNK DATE UNTIL NOV-2009
     Route: 058
     Dates: end: 20091101

REACTIONS (2)
  - APHONIA [None]
  - OROPHARYNGEAL PAIN [None]
